FAERS Safety Report 21470309 (Version 2)
Quarter: 2022Q4

REPORT INFORMATION
  Report Type: Spontaneous
  Country: BG (occurrence: BG)
  Receive Date: 20221018
  Receipt Date: 20221116
  Transmission Date: 20230113
  Serious: Yes (Hospitalization, Other)
  Sender: FDA-Public Use
  Company Number: BG-BRISTOL-MYERS SQUIBB COMPANY-2022-120851

PATIENT
  Age: 71 Year
  Sex: Male
  Weight: 96 kg

DRUGS (3)
  1. OPDIVO [Suspect]
     Active Substance: NIVOLUMAB
     Indication: Metastatic malignant melanoma
     Dosage: 2 COURSES IN COMBINATION
     Route: 065
     Dates: start: 202105, end: 202106
  2. OPDIVO [Suspect]
     Active Substance: NIVOLUMAB
     Dosage: 2 COURSES OF MONOTHERAPY
     Route: 065
     Dates: start: 202110
  3. YERVOY [Suspect]
     Active Substance: IPILIMUMAB
     Indication: Metastatic malignant melanoma
     Dosage: 2 COURSES IN COMBINATION
     Route: 065
     Dates: start: 202105, end: 202106

REACTIONS (20)
  - Mental disorder due to a general medical condition [Recovered/Resolved]
  - Dyspepsia [Recovered/Resolved]
  - Decreased appetite [Recovered/Resolved]
  - Weight decreased [Recovered/Resolved]
  - Pyrexia [Recovered/Resolved]
  - Pollakiuria [Unknown]
  - Dry mouth [Recovered/Resolved]
  - Hallucination [Recovered/Resolved]
  - Vision blurred [Unknown]
  - Osteoporosis [Recovering/Resolving]
  - Rash [Recovering/Resolving]
  - Diabetes insipidus [Unknown]
  - Lymphocytic hypophysitis [Unknown]
  - Blood lactate dehydrogenase increased [Unknown]
  - Aspartate aminotransferase increased [Unknown]
  - Alanine aminotransferase increased [Unknown]
  - Blood phosphorus increased [Unknown]
  - Alpha 1 foetoprotein increased [Unknown]
  - Bone disorder [Unknown]
  - Off label use [Unknown]

NARRATIVE: CASE EVENT DATE: 20210101
